FAERS Safety Report 5789508-4 (Version None)
Quarter: 2008Q2

REPORT INFORMATION
  Report Type: 
  Country: None (occurrence: None)
  Receive Date: 20080626
  Receipt Date: 20080623
  Transmission Date: 20081010
  Serious: No
  Sender: FDA-Public Use
  Company Number: US-ASTRAZENECA-2008UW01108

PATIENT
  Age: 12 Year
  Sex: Female
  Weight: 45.4 kg

DRUGS (2)
  1. PULMICORT FLEXHALER [Suspect]
     Indication: ASTHMA
     Route: 055
     Dates: start: 20070101
  2. SINGULAIR [Concomitant]

REACTIONS (1)
  - ASTHMA [None]
